FAERS Safety Report 9832246 (Version 2)
Quarter: 2014Q1

REPORT INFORMATION
  Report Type: Report from Study
  Country: DE (occurrence: DE)
  Receive Date: 20140121
  Receipt Date: 20140121
  Transmission Date: 20141002
  Serious: Yes (Hospitalization)
  Sender: FDA-Public Use
  Company Number: DE-ABBVIE-13P-062-1047955-00

PATIENT
  Sex: Female

DRUGS (2)
  1. HUMIRA [Suspect]
     Indication: RHEUMATOID ARTHRITIS
     Route: 058
     Dates: start: 20100501, end: 20130110
  2. HUMIRA [Suspect]
     Route: 058
     Dates: start: 201306

REACTIONS (1)
  - Chest X-ray abnormal [Not Recovered/Not Resolved]
